FAERS Safety Report 4640960-7 (Version None)
Quarter: 2005Q2

REPORT INFORMATION
  Report Type: 
  Country: None (occurrence: None)
  Receive Date: 20050420
  Receipt Date: 20050104
  Transmission Date: 20051028
  Serious: Yes (Hospitalization, Other)
  Sender: FDA-Public Use
  Company Number: US-MERCK-0501USA00179

PATIENT
  Age: 83 Year
  Sex: Female

DRUGS (8)
  1. VIOXX [Suspect]
     Route: 048
     Dates: start: 20000101
  2. NOLVADEX [Concomitant]
     Route: 065
  3. SYNTHROID [Concomitant]
     Route: 065
  4. ECOTRIN [Concomitant]
     Route: 065
  5. LOPRESSOR [Concomitant]
     Route: 065
  6. ZESTRIL [Concomitant]
     Route: 065
  7. ROCALTROL [Concomitant]
     Route: 065
  8. LIPITOR [Concomitant]
     Route: 065

REACTIONS (14)
  - ANGINA PECTORIS [None]
  - CEREBROVASCULAR ACCIDENT [None]
  - CHEST PAIN [None]
  - CONSTIPATION [None]
  - CORONARY ARTERY DISEASE [None]
  - DEMENTIA [None]
  - DIZZINESS [None]
  - DYSPNOEA [None]
  - HIP FRACTURE [None]
  - HYPERHIDROSIS [None]
  - MYOCARDIAL INFARCTION [None]
  - NAUSEA [None]
  - TRANSIENT ISCHAEMIC ATTACK [None]
  - WEIGHT DECREASED [None]
